FAERS Safety Report 18254380 (Version 1)
Quarter: 2020Q3

REPORT INFORMATION
  Report Type: Spontaneous
  Country: CN (occurrence: CN)
  Receive Date: 20200910
  Receipt Date: 20200910
  Transmission Date: 20201103
  Serious: Yes (Hospitalization)
  Sender: FDA-Public Use
  Company Number: NVSC2020CN247203

PATIENT
  Age: 65 Year
  Sex: Female

DRUGS (2)
  1. CYCLOSPORINE. [Suspect]
     Active Substance: CYCLOSPORINE
     Indication: AORTITIS
     Dosage: 50 MG, BID
     Route: 048
  2. METHYLPREDNISOLONE. [Suspect]
     Active Substance: METHYLPREDNISOLONE
     Indication: AORTITIS
     Dosage: 32 MG
     Route: 065

REACTIONS (5)
  - Brain abscess [Recovering/Resolving]
  - Product use in unapproved indication [Unknown]
  - Pyrexia [Recovered/Resolved]
  - Nocardiosis [Recovering/Resolving]
  - Therapeutic response decreased [Unknown]
